FAERS Safety Report 9258289 (Version 1)
Quarter: 2013Q2

REPORT INFORMATION
  Report Type: Spontaneous
  Country: IT (occurrence: IT)
  Receive Date: 20130426
  Receipt Date: 20130426
  Transmission Date: 20140414
  Serious: Yes (Hospitalization, Other)
  Sender: FDA-Public Use
  Company Number: IT-CELGENEUS-083-21880-13043067

PATIENT
  Age: 64 Year
  Sex: Female

DRUGS (3)
  1. REVLIMID [Suspect]
     Indication: PLASMA CELL MYELOMA
     Route: 048
  2. DEXAMETHASONE [Concomitant]
     Indication: PLASMA CELL MYELOMA
     Route: 065
  3. BENDAMUSTINE [Concomitant]
     Indication: PLASMA CELL MYELOMA
     Route: 065

REACTIONS (5)
  - Adverse event [Unknown]
  - Pancytopenia [Unknown]
  - Herpes zoster [Unknown]
  - Plasma cell myeloma [Unknown]
  - Neuropathy peripheral [Unknown]
